FAERS Safety Report 9335754 (Version 1)
Quarter: 2013Q2

REPORT INFORMATION
  Report Type: Spontaneous
  Country: US (occurrence: US)
  Receive Date: 20130606
  Receipt Date: 20130606
  Transmission Date: 20140414
  Serious: No
  Sender: FDA-Public Use
  Company Number: US-AMGEN-USASP2013016809

PATIENT
  Age: 67 Year
  Sex: Female

DRUGS (5)
  1. PROLIA [Suspect]
     Indication: OSTEOPOROSIS POSTMENOPAUSAL
  2. NEXIUM                             /01479302/ [Concomitant]
  3. VITAMIN D                          /00107901/ [Concomitant]
     Dosage: 1000 IU, UNK
  4. PANTOPRAZOLE [Concomitant]
  5. SIMVASTATIN [Concomitant]
     Dosage: 40 MG, UNK

REACTIONS (5)
  - Vomiting [Recovered/Resolved]
  - Mobility decreased [Recovered/Resolved]
  - Myalgia [Recovered/Resolved]
  - Bone pain [Recovered/Resolved]
  - Constipation [Recovered/Resolved]
